FAERS Safety Report 6288933-5 (Version None)
Quarter: 2009Q3

REPORT INFORMATION
  Report Type: 
  Country: None (occurrence: None)
  Receive Date: 20090729
  Receipt Date: 20080811
  Transmission Date: 20100115
  Serious: Yes (Life-Threatening, Hospitalization)
  Sender: FDA-Public Use
  Company Number: PE-PFIZER INC-2008049989

PATIENT
  Age: 73 Year

DRUGS (21)
  1. NAPROXEN [Suspect]
     Indication: ARTHRITIS
     Route: 048
     Dates: start: 20080606, end: 20080611
  2. BLINDED *NO SUBJECT DRUG [Suspect]
     Indication: ARTHRITIS
     Route: 048
     Dates: start: 20080606, end: 20080611
  3. BLINDED *PLACEBO [Suspect]
     Indication: ARTHRITIS
     Route: 048
     Dates: start: 20080606, end: 20080611
  4. BLINDED CELECOXIB [Suspect]
     Indication: ARTHRITIS
     Route: 048
     Dates: start: 20080606, end: 20080611
  5. IBUPROFEN [Suspect]
     Indication: ARTHRITIS
     Route: 048
     Dates: start: 20080606, end: 20080611
  6. NAPROXEN [Suspect]
     Route: 048
     Dates: start: 20080606, end: 20080611
  7. NAPROXEN [Suspect]
     Indication: RHEUMATOID ARTHRITIS
  8. BLINDED *NO SUBJECT DRUG [Suspect]
     Indication: RHEUMATOID ARTHRITIS
  9. BLINDED *PLACEBO [Suspect]
     Indication: RHEUMATOID ARTHRITIS
  10. BLINDED CELECOXIB [Suspect]
     Indication: RHEUMATOID ARTHRITIS
  11. IBUPROFEN [Suspect]
     Indication: RHEUMATOID ARTHRITIS
  12. NAPROXEN [Suspect]
  13. NEXIUM [Suspect]
     Route: 048
     Dates: start: 20080606, end: 20080611
  14. RISEDRONATE SODIUM [Concomitant]
     Route: 048
     Dates: start: 20070301, end: 20080611
  15. CALCIUM CARBONATE [Concomitant]
     Route: 048
     Dates: start: 20070301, end: 20080611
  16. VITAMIN D [Concomitant]
     Route: 048
     Dates: start: 20070301, end: 20080611
  17. PREDNISONE [Concomitant]
     Route: 048
     Dates: start: 20000101, end: 20080611
  18. LEFLUNOMIDE [Concomitant]
     Route: 048
     Dates: start: 20020101, end: 20080611
  19. ENALAPRIL MALEATE [Concomitant]
     Route: 048
     Dates: start: 20050601, end: 20080611
  20. SIMVASTATIN [Concomitant]
     Route: 048
     Dates: start: 20060301, end: 20080611
  21. CELECOXIB [Concomitant]
     Dosage: UNK
     Route: 048
     Dates: start: 20050101, end: 20080526

REACTIONS (2)
  - ATRIAL FIBRILLATION [None]
  - MYOCARDIAL INFARCTION [None]
